FAERS Safety Report 4608865-5 (Version None)
Quarter: 2005Q1

REPORT INFORMATION
  Report Type: 
  Country: None (occurrence: None)
  Receive Date: 20050311
  Receipt Date: 20050228
  Transmission Date: 20050727
  Serious: Yes (Death, Life-Threatening)
  Sender: FDA-Public Use
  Company Number: 2005038707

PATIENT
  Age: 79 Year
  Sex: Male

DRUGS (6)
  1. LINEZOLID SOLUTION, STERILE (LINEZOLID) [Suspect]
     Indication: ILL-DEFINED DISORDER
     Dosage: 1200 MG (600 MG, 2 IN 24 HR), INTRAVENOUS
     Route: 042
     Dates: start: 20050106, end: 20050117
  2. FLUCONAZOLE [Suspect]
     Indication: ILL-DEFINED DISORDER
     Dosage: 800 MG (400 MG, 2 IN 24  HR), INTRAVENOUS
     Route: 042
     Dates: start: 20041226, end: 20050108
  3. CLOXACILLIN SODIUM [Suspect]
     Indication: ILL-DEFINED DISORDER
     Dosage: 12 GRAM (3 GRAM, 4 IN 24 HR), INTRAVENOUS
     Route: 042
     Dates: start: 20041230, end: 20050105
  4. OFLOXACIN [Suspect]
     Indication: ILL-DEFINED DISORDER
     Dosage: 600 MG (200 MG,3 IN 24 HR), INTRAVENOUS
     Route: 042
     Dates: start: 20041230, end: 20050108
  5. PIP/TAZO (PIPERACILLIN SODIUM, TAZOBACTAM SODIUM) [Suspect]
     Indication: ILL-DEFINED DISORDER
     Dosage: 12 GRAM (4 GRAM, 3 IN 24 HR), INTRAVENOUS
     Route: 042
     Dates: start: 20041226, end: 20050105
  6. TIENAM (CILASTATIN, IMIPENEM) [Suspect]
     Indication: ILL-DEFINED DISORDER
     Dosage: 4 GRAM (1 GRAM, 4 IN 24 HR), INTRAVENOUS
     Route: 042
     Dates: start: 20050102, end: 20050106

REACTIONS (9)
  - CARDIO-RESPIRATORY ARREST [None]
  - HAEMODYNAMIC INSTABILITY [None]
  - HYPOKINESIA [None]
  - ISCHAEMIC STROKE [None]
  - OXYGEN SATURATION DECREASED [None]
  - PACEMAKER COMPLICATION [None]
  - PANCYTOPENIA [None]
  - PULMONARY ALVEOLAR HAEMORRHAGE [None]
  - SPINAL MYELOGRAM ABNORMAL [None]
